FAERS Safety Report 22766446 (Version 2)
Quarter: 2024Q3

REPORT INFORMATION
  Report Type: Report from Study
  Country: US (occurrence: US)
  Receive Date: 20230731
  Receipt Date: 20240724
  Transmission Date: 20241016
  Serious: Yes (Hospitalization, Other)
  Sender: ABBVIE
  Company Number: US-ABBVIE-5338202

PATIENT
  Sex: Female

DRUGS (1)
  1. HUMIRA [Suspect]
     Active Substance: ADALIMUMAB
     Indication: Colitis ulcerative
     Route: 058
     Dates: start: 20221212

REACTIONS (9)
  - Colitis ulcerative [Recovering/Resolving]
  - Stress [Unknown]
  - Constipation [Unknown]
  - Migraine [Unknown]
  - Deafness unilateral [Unknown]
  - Balance disorder [Unknown]
  - Cerebral disorder [Unknown]
  - Fall [Unknown]
  - Deafness neurosensory [Unknown]
